FAERS Safety Report 5221584-X (Version None)
Quarter: 2007Q1

REPORT INFORMATION
  Report Type: 
  Country: None (occurrence: None)
  Receive Date: 20070127
  Receipt Date: 20070112
  Transmission Date: 20070707
  Serious: Yes (Hospitalization)
  Sender: FDA-Public Use
  Company Number: US-JNJFOC-20070104677

PATIENT
  Age: 26 Year
  Sex: Female

DRUGS (10)
  1. TRAMADOL HYDROCHLORIDE AND ACETAMINOPHEN [Suspect]
     Indication: INTENTIONAL OVERDOSE
     Route: 048
  2. BENZODIAZEPINE [Suspect]
     Indication: INTENTIONAL OVERDOSE
     Route: 048
  3. AMITRIPTYLINE HCL [Suspect]
     Indication: INTENTIONAL OVERDOSE
     Route: 048
  4. ANTICONVULSANT [Suspect]
     Indication: INTENTIONAL OVERDOSE
     Route: 048
  5. SEDATIVE/HYPNOTIC/ANTI-ANXIETY OR ANTI-PSYCHOTIC [Suspect]
     Indication: INTENTIONAL OVERDOSE
     Route: 048
  6. BETA BLOCKERS [Suspect]
     Indication: INTENTIONAL OVERDOSE
     Route: 048
  7. CORTICOSTEROIDS [Suspect]
     Indication: INTENTIONAL OVERDOSE
     Route: 048
  8. MUSCLE RELAXANT [Suspect]
     Indication: INTENTIONAL OVERDOSE
     Route: 048
  9. ANTIDIARRHEALS [Suspect]
     Indication: INTENTIONAL OVERDOSE
     Route: 048
  10. NON-STEROIDAL ANTI-INFLAMMATORY [Suspect]
     Indication: INTENTIONAL OVERDOSE
     Route: 048

REACTIONS (6)
  - BRADYCARDIA [None]
  - DEPRESSED LEVEL OF CONSCIOUSNESS [None]
  - HYPOTENSION [None]
  - MULTIPLE DRUG OVERDOSE INTENTIONAL [None]
  - RESPIRATORY DEPRESSION [None]
  - UNRESPONSIVE TO STIMULI [None]
